FAERS Safety Report 15206894 (Version 1)
Quarter: 2018Q3

REPORT INFORMATION
  Report Type: Spontaneous
  Country: US (occurrence: US)
  Receive Date: 20180628
  Receipt Date: 20180628
  Transmission Date: 20181010
  Serious: No
  Sender: FDA-Public Use
  Company Number: None

PATIENT
  Age: 58 Year
  Sex: Male
  Weight: 106.59 kg

DRUGS (1)
  1. METHYLPHENIDATE LA 30MG [Suspect]
     Active Substance: METHYLPHENIDATE HYDROCHLORIDE
     Indication: PRODUCT USED FOR UNKNOWN INDICATION
     Route: 048
     Dates: start: 20180518, end: 20180528

REACTIONS (5)
  - Therapeutic response changed [None]
  - Product substitution issue [None]
  - Fatigue [None]
  - Depression [None]
  - Hypersomnia [None]
